FAERS Safety Report 11718457 (Version 1)
Quarter: 2015Q4

REPORT INFORMATION
  Report Type: Spontaneous
  Country: RU (occurrence: RU)
  Receive Date: 20151110
  Receipt Date: 20151110
  Transmission Date: 20160304
  Serious: Yes (Other)
  Sender: FDA-Public Use
  Company Number: RU-FRESENIUS KABI-FK201505692

PATIENT
  Age: 64 Year
  Sex: Female

DRUGS (1)
  1. PROPOFOL MCT FRESENIUS (NOT SPECIFIED) [Suspect]
     Active Substance: PROPOFOL
     Indication: INDUCTION OF ANAESTHESIA
     Route: 042

REACTIONS (5)
  - Urticaria [Unknown]
  - Blood pressure increased [Unknown]
  - Bronchial obstruction [Unknown]
  - Anaphylactic shock [Unknown]
  - Hyperaemia [Unknown]
